FAERS Safety Report 6058814-0 (Version None)
Quarter: 2009Q1

REPORT INFORMATION
  Report Type: 
  Country: None (occurrence: None)
  Receive Date: 20090130
  Receipt Date: 20090122
  Transmission Date: 20090719
  Serious: Yes (Hospitalization)
  Sender: FDA-Public Use
  Company Number: US-ABBOTT-09P-163-0499264-00

PATIENT
  Age: 81 Year
  Sex: Female
  Weight: 59.02 kg

DRUGS (3)
  1. SYNTHROID [Suspect]
     Indication: POST PROCEDURAL HYPOTHYROIDISM
     Route: 048
  2. SYNTHROID [Suspect]
     Indication: THYROIDECTOMY
  3. UNKNOWN OTHER MEDICATIONS [Concomitant]
     Indication: DRUG USE FOR UNKNOWN INDICATION

REACTIONS (5)
  - DEPRESSION [None]
  - FATIGUE [None]
  - PLEURAL EFFUSION [None]
  - SYNCOPE [None]
  - WEIGHT DECREASED [None]
